FAERS Safety Report 25827131 (Version 3)
Quarter: 2025Q4

REPORT INFORMATION
  Report Type: Spontaneous
  Country: EU (occurrence: EU)
  Receive Date: 20250920
  Receipt Date: 20251114
  Transmission Date: 20260118
  Serious: Yes (Other)
  Sender: NOVARTIS
  Company Number: EU-002147023-NVSC2025ES143524

PATIENT
  Age: 9 Year
  Sex: Female
  Weight: 20 kg

DRUGS (3)
  1. TRILEPTAL [Suspect]
     Active Substance: OXCARBAZEPINE
     Indication: Gastrointestinal disorder
     Dosage: 4ML / 6ML (4 ML AT 11:00-11:30; 6 ML AT 21:00-21:30)
     Route: 065
     Dates: start: 202012
  2. TRILEPTAL [Suspect]
     Active Substance: OXCARBAZEPINE
     Indication: Epilepsy
  3. LANSOPRAZOLE [Concomitant]
     Active Substance: LANSOPRAZOLE
     Indication: Gastrooesophageal reflux disease
     Dosage: 15 MG, Q12H
     Route: 065
     Dates: start: 2023

REACTIONS (6)
  - Epilepsy [Recovered/Resolved]
  - Cyanosis [Recovered/Resolved]
  - Apnoea [Unknown]
  - Off label use [Unknown]
  - Nervousness [Unknown]
  - Discomfort [Unknown]

NARRATIVE: CASE EVENT DATE: 20250907
